FAERS Safety Report 19371936 (Version 1)
Quarter: 2021Q2

REPORT INFORMATION
  Report Type: Other
  Country: HR (occurrence: HR)
  Receive Date: 20210604
  Receipt Date: 20210604
  Transmission Date: 20210717
  Serious: Yes (Death)
  Sender: FDA-Public Use
  Company Number: HR-ROCHE-2840100

PATIENT

DRUGS (5)
  1. CEOP [VINCRISTINE] [Suspect]
     Active Substance: VINCRISTINE
  2. RITUXIMAB. [Suspect]
     Active Substance: RITUXIMAB
     Indication: DIFFUSE LARGE B-CELL LYMPHOMA
     Route: 065
  3. CEOP [PREDNISONE] [Suspect]
     Active Substance: PREDNISONE
  4. CEOP [CYCLOPHOSPHAMIDE] [Suspect]
     Active Substance: CYCLOPHOSPHAMIDE
     Indication: DIFFUSE LARGE B-CELL LYMPHOMA
     Route: 065
  5. CEOP [ETOPOSIDE] [Suspect]
     Active Substance: ETOPOSIDE

REACTIONS (3)
  - Toxicity to various agents [Fatal]
  - Therapy non-responder [Unknown]
  - Therapy partial responder [Unknown]
